FAERS Safety Report 5812344-7 (Version None)
Quarter: 2008Q3

REPORT INFORMATION
  Report Type: 
  Country: None (occurrence: None)
  Receive Date: 20080716
  Receipt Date: 20080707
  Transmission Date: 20090109
  Serious: Yes (Other)
  Sender: FDA-Public Use
  Company Number: BE-PFIZER INC-2008051915

PATIENT
  Sex: Male
  Weight: 100 kg

DRUGS (5)
  1. SUTENT [Suspect]
     Indication: METASTATIC RENAL CELL CARCINOMA
     Route: 048
  2. ZESTRIL [Suspect]
     Indication: HYPERTENSION
     Route: 048
  3. LORMETAZEPAM [Concomitant]
     Route: 048
  4. LIPANTHYL [Concomitant]
     Route: 048
  5. RANITIDINE HCL [Concomitant]
     Route: 048

REACTIONS (2)
  - ANGIOEDEMA [None]
  - HYPERTENSION [None]
